FAERS Safety Report 7555620-2 (Version None)
Quarter: 2011Q2

REPORT INFORMATION
  Report Type: 
  Country: None (occurrence: None)
  Receive Date: 20110617
  Receipt Date: 20080610
  Transmission Date: 20111010
  Serious: Yes (Death, Other)
  Sender: FDA-Public Use
  Company Number: PHHY2008CA05981

PATIENT
  Sex: Female

DRUGS (3)
  1. DIURETICS [Concomitant]
  2. CARDIAC THERAPY [Concomitant]
  3. SANDOSTATIN LAR [Suspect]
     Indication: CARCINOID TUMOUR
     Dosage: 20 MG, ONCE A MONTH
     Route: 030
     Dates: start: 20080226, end: 20080520

REACTIONS (2)
  - DEATH [None]
  - POST PROCEDURAL COMPLICATION [None]
